FAERS Safety Report 5818548-1 (Version None)
Quarter: 2008Q3

REPORT INFORMATION
  Report Type: 
  Country: None (occurrence: None)
  Receive Date: 20080718
  Receipt Date: 20080627
  Transmission Date: 20090109
  Serious: Yes (Disabling)
  Sender: FDA-Public Use
  Company Number: 62899

PATIENT
  Sex: Male
  Weight: 68.0396 kg

DRUGS (7)
  1. MAXIMUM STRENGTH LICE KILLING SHAMPOO [Suspect]
     Indication: LICE INFESTATION
     Dosage: X1/TOPICAL
     Route: 061
     Dates: start: 20070826, end: 20070826
  2. LIPITOR [Concomitant]
  3. FLUOXETINE [Concomitant]
  4. DIAZEPAM [Concomitant]
  5. SEROQUEL [Concomitant]
  6. NEXIUM [Concomitant]
  7. BELLADONNA [Concomitant]

REACTIONS (8)
  - BLINDNESS [None]
  - CORNEAL ABRASION [None]
  - EYE IRRITATION [None]
  - HEADACHE [None]
  - KERATITIS [None]
  - PERIORBITAL OEDEMA [None]
  - PHOTOPHOBIA [None]
  - VISION BLURRED [None]
